FAERS Safety Report 7264171-4 (Version None)
Quarter: 2011Q1

REPORT INFORMATION
  Report Type: 
  Country: None (occurrence: None)
  Receive Date: 20110131
  Receipt Date: 20110120
  Transmission Date: 20110831
  Serious: Yes (Hospitalization)
  Sender: FDA-Public Use
  Company Number: US-BIOGENIDEC-2011BI002464

PATIENT
  Age: 35 Year
  Sex: Female
  Weight: 119 kg

DRUGS (12)
  1. PROPRANOLOL [Concomitant]
     Indication: HYPERTENSION
  2. ASPIRIN [Concomitant]
     Route: 048
  3. MULTI-VITAMIN [Concomitant]
     Route: 048
  4. TYSABRI [Suspect]
     Indication: MULTIPLE SCLEROSIS
     Route: 042
     Dates: start: 20091009
  5. CALCIUM [Concomitant]
     Indication: MULTIPLE SCLEROSIS
     Route: 048
  6. IMITREX [Concomitant]
     Indication: MIGRAINE
     Route: 048
  7. NORTRIPTYLINE [Concomitant]
     Route: 048
  8. RANITIDINE [Concomitant]
     Route: 048
  9. NAPROXEN [Concomitant]
     Indication: PAIN
     Route: 048
  10. VITAMIN D [Concomitant]
     Indication: MULTIPLE SCLEROSIS
     Route: 048
  11. ALBUTEROL [Concomitant]
  12. FISH OIL [Concomitant]
     Route: 048

REACTIONS (1)
  - CANDIDA PNEUMONIA [None]
